FAERS Safety Report 7952965-9 (Version None)
Quarter: 2011Q4

REPORT INFORMATION
  Report Type: 
  Country: None (occurrence: None)
  Receive Date: 20111201
  Receipt Date: 20111122
  Transmission Date: 20120403
  Serious: Yes (Hospitalization)
  Sender: FDA-Public Use
  Company Number: PHHY2011FR103039

PATIENT
  Sex: Female

DRUGS (2)
  1. ANALGESICS [Concomitant]
  2. DESERNIL [Suspect]
     Indication: HEADACHE
     Dosage: 1.65 MG, UNK
     Route: 048
     Dates: start: 20040101

REACTIONS (3)
  - HEADACHE [None]
  - DRUG DEPENDENCE [None]
  - INTENTIONAL DRUG MISUSE [None]
